FAERS Safety Report 25238718 (Version 1)
Quarter: 2025Q2

REPORT INFORMATION
  Report Type: Spontaneous
  Country: RU (occurrence: RU)
  Receive Date: 20250425
  Receipt Date: 20250425
  Transmission Date: 20250716
  Serious: Yes (Other)
  Sender: CHEPLAPHARM
  Company Number: RU-ASTRAZENECA-202504RUS008497RU

PATIENT
  Sex: Male

DRUGS (1)
  1. QUETIAPINE [Suspect]
     Active Substance: QUETIAPINE

REACTIONS (2)
  - Hallucination [Unknown]
  - Drug ineffective [Unknown]
